FAERS Safety Report 9813710 (Version 2)
Quarter: 2014Q1

REPORT INFORMATION
  Report Type: Report from Study
  Country: US (occurrence: US)
  Receive Date: 20140113
  Receipt Date: 20140214
  Transmission Date: 20141002
  Serious: Yes (Hospitalization)
  Sender: FDA-Public Use
  Company Number: US-BRISTOL-MYERS SQUIBB COMPANY-19985217

PATIENT
  Age: 83 Year
  Sex: Male
  Weight: 98 kg

DRUGS (1)
  1. IPILIMUMAB [Suspect]
     Indication: MALIGNANT MELANOMA
     Dosage: THERAPY DATES:20NOV AND 11DEC2013,3JAN2014.STRENGTH-5MG/ML
     Route: 042
     Dates: start: 20131120, end: 20140124

REACTIONS (3)
  - Dyspnoea [Unknown]
  - Cough [Unknown]
  - Pyrexia [Unknown]
